FAERS Safety Report 8197269-7 (Version None)
Quarter: 2012Q1

REPORT INFORMATION
  Report Type: 
  Country: None (occurrence: None)
  Receive Date: 20120309
  Receipt Date: 20120307
  Transmission Date: 20120608
  Serious: Yes (Other)
  Sender: FDA-Public Use
  Company Number: SE-PFIZER INC-2012060614

PATIENT
  Age: 50 Year
  Sex: Female

DRUGS (2)
  1. LYRICA [Suspect]
     Dosage: UNK
  2. LYRICA [Suspect]
     Dosage: 25 MG
     Route: 048
     Dates: start: 20120125, end: 20120125

REACTIONS (3)
  - DIZZINESS [None]
  - ANAPHYLACTIC SHOCK [None]
  - VISUAL IMPAIRMENT [None]
